FAERS Safety Report 9213792 (Version 1)
Quarter: 2013Q2

REPORT INFORMATION
  Report Type: Spontaneous
  Country: US (occurrence: US)
  Receive Date: 20130405
  Receipt Date: 20130405
  Transmission Date: 20140414
  Serious: No
  Sender: FDA-Public Use
  Company Number: US-009507513-1304USA002317

PATIENT
  Age: 15 Year
  Sex: Female
  Weight: 65.76 kg

DRUGS (2)
  1. IMPLANON [Suspect]
     Indication: CONTRACEPTION
     Dosage: UNK
     Route: 059
     Dates: start: 20110628
  2. TYLENOL [Concomitant]

REACTIONS (1)
  - Metrorrhagia [Unknown]
